FAERS Safety Report 6562739-1 (Version None)
Quarter: 2010Q1

REPORT INFORMATION
  Report Type: 
  Country: None (occurrence: None)
  Receive Date: 20100130
  Receipt Date: 20091119
  Transmission Date: 20100710
  Serious: No
  Sender: FDA-Public Use
  Company Number: US-ABBOTT-09P-163-0610321-00

PATIENT
  Sex: Female
  Weight: 63.56 kg

DRUGS (1)
  1. HUMIRA [Suspect]
     Indication: JUVENILE ARTHRITIS
     Dates: start: 20090901, end: 20091001

REACTIONS (6)
  - ARTHRALGIA [None]
  - DENTAL CARIES [None]
  - DYSKINESIA [None]
  - LYMPHADENOPATHY [None]
  - SPEECH DISORDER [None]
  - SWELLING FACE [None]
